FAERS Safety Report 7632134-2 (Version None)
Quarter: 2011Q3

REPORT INFORMATION
  Report Type: 
  Country: None (occurrence: None)
  Receive Date: 20110725
  Receipt Date: 20110725
  Transmission Date: 20111222
  Serious: Yes (Other)
  Sender: FDA-Public Use
  Company Number: None

PATIENT
  Age: 37 Year
  Sex: Female
  Weight: 53.07 kg

DRUGS (1)
  1. TRAMADOL HCL [Suspect]
     Route: 048

REACTIONS (10)
  - CHILLS [None]
  - DIARRHOEA [None]
  - ECONOMIC PROBLEM [None]
  - PARAESTHESIA [None]
  - MARITAL PROBLEM [None]
  - INTENTIONAL DRUG MISUSE [None]
  - RESTLESS LEGS SYNDROME [None]
  - DRUG DEPENDENCE [None]
  - DRUG WITHDRAWAL SYNDROME [None]
  - SELF ESTEEM DECREASED [None]
